FAERS Safety Report 5508610-5 (Version None)
Quarter: 2007Q4

REPORT INFORMATION
  Report Type: 
  Country: None (occurrence: None)
  Receive Date: 20071107
  Receipt Date: 20071105
  Transmission Date: 20080405
  Serious: Yes (Hospitalization)
  Sender: FDA-Public Use
  Company Number: JP-BAYER-200710703BYL

PATIENT
  Age: 80 Year
  Sex: Male
  Weight: 65 kg

DRUGS (25)
  1. BAY43-9006 [Suspect]
     Indication: HEPATIC NEOPLASM MALIGNANT
     Dosage: TOTAL DAILY DOSE: 800 MG  UNIT DOSE: 400 MG
     Route: 048
     Dates: start: 20070719, end: 20070802
  2. BAY43-9006 [Suspect]
     Dosage: TOTAL DAILY DOSE: 400 MG  UNIT DOSE: 400 MG
     Route: 048
     Dates: start: 20070816, end: 20070927
  3. AMARYL [Concomitant]
     Indication: DIABETES MELLITUS
     Dosage: TOTAL DAILY DOSE: 3 MG  UNIT DOSE: 3 MG
     Route: 048
     Dates: start: 20070819, end: 20071001
  4. HUMULIN 70/30 [Concomitant]
     Indication: DIABETES MELLITUS
     Dosage: TOTAL DAILY DOSE: 12 U
     Route: 058
     Dates: start: 20071002, end: 20071005
  5. NOVOLIN N [Concomitant]
     Indication: DIABETES MELLITUS
     Dosage: TOTAL DAILY DOSE: 4 U
     Route: 058
     Dates: start: 20071002, end: 20071006
  6. GLYSENNID [Concomitant]
     Indication: CONSTIPATION
     Route: 048
     Dates: start: 20070619
  7. URSO 250 [Concomitant]
     Indication: CHOLELITHIASIS
     Dosage: TOTAL DAILY DOSE: 600 MG  UNIT DOSE: 100 MG
     Route: 048
     Dates: start: 20070819
  8. LASIX [Concomitant]
     Indication: ASCITES
     Dosage: TOTAL DAILY DOSE: 20 MG  UNIT DOSE: 20 MG
     Route: 048
     Dates: start: 20070619
  9. ALDACTONE [Concomitant]
     Indication: ASCITES
     Dosage: TOTAL DAILY DOSE: 25 MG  UNIT DOSE: 25 MG
     Route: 048
     Dates: start: 20070619
  10. NORVASC [Concomitant]
     Indication: HYPERTENSION
     Dosage: TOTAL DAILY DOSE: 5 MG  UNIT DOSE: 5 MG
     Route: 048
     Dates: start: 20070619
  11. GASPORT [Concomitant]
     Indication: GASTRIC ULCER
     Dosage: TOTAL DAILY DOSE: 40 MG  UNIT DOSE: 20 MG
     Route: 048
     Dates: start: 20070619, end: 20070729
  12. GEFANIL [Concomitant]
     Indication: GASTRIC ULCER
     Dosage: TOTAL DAILY DOSE: 300 MG  UNIT DOSE: 100 MG
     Route: 048
     Dates: start: 20070619
  13. SANCOBA [Concomitant]
     Indication: CATARACT
     Route: 031
     Dates: start: 20070619
  14. SHAKUYAKU-KANZO-TO [Concomitant]
     Indication: MUSCLE SPASMS
     Route: 048
     Dates: start: 20070619
  15. FAMOTIDINE [Concomitant]
     Indication: GASTRIC ULCER
     Dosage: TOTAL DAILY DOSE: 40 MG  UNIT DOSE: 20 MG
     Route: 048
     Dates: start: 20070730
  16. RINDERON-VG [Concomitant]
     Indication: SKIN REACTION
     Route: 061
     Dates: start: 20070802, end: 20071012
  17. KERATINAMIN [Concomitant]
     Indication: SKIN REACTION
     Route: 061
     Dates: start: 20070802, end: 20071012
  18. ALLOPURINOL [Concomitant]
     Indication: RENAL IMPAIRMENT
     Dosage: TOTAL DAILY DOSE: 100 MG  UNIT DOSE: 100 MG
     Route: 048
     Dates: start: 20070830
  19. SOLITA-T NO.1 [Concomitant]
     Indication: RENAL IMPAIRMENT
     Route: 042
     Dates: start: 20070712
  20. BICARBONATED RINGER'S SOLUTION [Concomitant]
     Indication: RENAL IMPAIRMENT
     Dosage: UNIT DOSE: 500 ML
     Route: 011
     Dates: start: 20070619
  21. ISOTONIC SODIUM CHLORIDE SOLUTION [Concomitant]
     Indication: RENAL IMPAIRMENT
     Dosage: TOTAL DAILY DOSE: 500 ML  UNIT DOSE: 500 ML
     Route: 042
     Dates: start: 20071002, end: 20071002
  22. CRAVIT [Concomitant]
     Indication: PYREXIA
     Dosage: TOTAL DAILY DOSE: 300 MG  UNIT DOSE: 300 MG
     Route: 048
     Dates: start: 20070927, end: 20071002
  23. SULPERAZON [Concomitant]
     Indication: C-REACTIVE PROTEIN INCREASED
     Dosage: TOTAL DAILY DOSE: 2 G  UNIT DOSE: 1 G
     Route: 042
     Dates: start: 20071002, end: 20071008
  24. VOLTAREN [Concomitant]
     Indication: PYREXIA
     Dosage: TOTAL DAILY DOSE: 25 MG  UNIT DOSE: 25 MG
     Route: 048
     Dates: start: 20070927, end: 20071002
  25. MOHRUS TAPE [Concomitant]
     Indication: PROPHYLAXIS
     Route: 062
     Dates: start: 20070927, end: 20070928

REACTIONS (4)
  - BLOOD AMYLASE INCREASED [None]
  - BLOOD TRYPSIN INCREASED [None]
  - HYPERGLYCAEMIA [None]
  - LIPASE INCREASED [None]
